FAERS Safety Report 4307211-4 (Version None)
Quarter: 2004Q1

REPORT INFORMATION
  Report Type: 
  Country: None (occurrence: None)
  Receive Date: 20040225
  Receipt Date: 20040216
  Transmission Date: 20041129
  Serious: Yes (Hospitalization)
  Sender: FDA-Public Use
  Company Number: 2004UW02726

PATIENT
  Age: 53 Year
  Sex: Male
  Weight: 43.4 kg

DRUGS (8)
  1. IRESSA [Suspect]
     Indication: NEOPLASM MALIGNANT
     Dosage: 250 MG DAILY PO
     Route: 048
     Dates: start: 20030822, end: 20031202
  2. VICODIN [Concomitant]
  3. TYLENOL W/ CODEINE [Concomitant]
  4. ATIVAN [Concomitant]
  5. BACTRIM [Concomitant]
  6. NYSTATIN [Concomitant]
  7. FLOMAX [Concomitant]
  8. SYNTHROID [Concomitant]

REACTIONS (11)
  - BLOOD GLUCOSE DECREASED [None]
  - CLOSTRIDIAL INFECTION [None]
  - FISTULA [None]
  - HYPOTHERMIA [None]
  - HYPOTHYROIDISM [None]
  - IMPAIRED HEALING [None]
  - LETHARGY [None]
  - MARKEDLY REDUCED DIETARY INTAKE [None]
  - MENTAL STATUS CHANGES [None]
  - RENAL FAILURE ACUTE [None]
  - URINARY TRACT INFECTION [None]
